FAERS Safety Report 24655022 (Version 4)
Quarter: 2025Q3

REPORT INFORMATION
  Report Type: Report from Study
  Country: US (occurrence: US)
  Receive Date: 20241122
  Receipt Date: 20250727
  Transmission Date: 20251020
  Serious: Yes (Other)
  Sender: ABBVIE
  Company Number: US-ABBVIE-5763195

PATIENT
  Age: 60 Year
  Sex: Female

DRUGS (8)
  1. SKYRIZI [Suspect]
     Active Substance: RISANKIZUMAB-RZAA
     Indication: Crohn^s disease
     Route: 058
  2. SKYRIZI [Suspect]
     Active Substance: RISANKIZUMAB-RZAA
     Route: 058
     Dates: start: 2024, end: 2024
  3. SKYRIZI [Suspect]
     Active Substance: RISANKIZUMAB-RZAA
     Dosage: FORM STRENGTH: 360MG/2.4ML
     Route: 058
     Dates: start: 2024
  4. SKYRIZI [Suspect]
     Active Substance: RISANKIZUMAB-RZAA
     Route: 058
  5. SKYRIZI [Suspect]
     Active Substance: RISANKIZUMAB-RZAA
     Dosage: 360MG/2.4ML
     Route: 058
  6. SKYRIZI [Suspect]
     Active Substance: RISANKIZUMAB-RZAA
     Indication: Crohn^s disease
     Route: 042
     Dates: start: 20240405, end: 20240405
  7. SKYRIZI [Suspect]
     Active Substance: RISANKIZUMAB-RZAA
     Indication: Crohn^s disease
     Route: 042
     Dates: start: 20240503, end: 20240503
  8. SKYRIZI [Suspect]
     Active Substance: RISANKIZUMAB-RZAA
     Indication: Crohn^s disease
     Route: 042
     Dates: start: 20240531, end: 20240531

REACTIONS (28)
  - Skin cancer [Unknown]
  - Arthralgia [Not Recovered/Not Resolved]
  - Oral herpes [Unknown]
  - Diarrhoea [Unknown]
  - Intestinal resection [Unknown]
  - Pain in extremity [Unknown]
  - Peripheral swelling [Unknown]
  - Drug ineffective [Unknown]
  - Injection site erythema [Recovered/Resolved]
  - Pain [Unknown]
  - Injection site papule [Recovered/Resolved]
  - Pain in extremity [Unknown]
  - Paranasal sinus discomfort [Unknown]
  - Sinus headache [Unknown]
  - Insomnia [Unknown]
  - Abdominal distension [Unknown]
  - Gastrointestinal sounds abnormal [Unknown]
  - Nodule [Unknown]
  - Musculoskeletal stiffness [Unknown]
  - Burning sensation [Unknown]
  - Paraesthesia [Unknown]
  - Diarrhoea [Unknown]
  - Weight increased [Unknown]
  - Dyspepsia [Unknown]
  - Feeling abnormal [Unknown]
  - Adverse food reaction [Unknown]
  - Osteoarthritis [Unknown]
  - Arthritis [Unknown]

NARRATIVE: CASE EVENT DATE: 20240101
